FAERS Safety Report 19490746 (Version 1)
Quarter: 2021Q3

REPORT INFORMATION
  Report Type: Spontaneous
  Country: CA (occurrence: CA)
  Receive Date: 20210705
  Receipt Date: 20210705
  Transmission Date: 20211014
  Serious: Yes (Death, Hospitalization)
  Sender: FDA-Public Use
  Company Number: CA-ROCHE-2860313

PATIENT
  Age: 71 Year
  Sex: Male
  Weight: 118 kg

DRUGS (13)
  1. TOCILIZUMAB. [Suspect]
     Active Substance: TOCILIZUMAB
     Route: 042
  2. TOCILIZUMAB. [Suspect]
     Active Substance: TOCILIZUMAB
     Route: 042
  3. RISEDRONATE SODIUM. [Concomitant]
     Active Substance: RISEDRONATE SODIUM
  4. METHYLPREDNISOLONE SODIUM SUCCINATE. [Concomitant]
     Active Substance: METHYLPREDNISOLONE SODIUM SUCCINATE
  5. TYLENOL [Concomitant]
     Active Substance: ACETAMINOPHEN
     Route: 048
  6. FOLIC ACID. [Concomitant]
     Active Substance: FOLIC ACID
  7. METHOTREXATE. [Concomitant]
     Active Substance: METHOTREXATE
     Route: 058
  8. RITUXIMAB. [Suspect]
     Active Substance: RITUXIMAB
     Indication: RHEUMATOID ARTHRITIS
     Route: 042
  9. TOCILIZUMAB. [Suspect]
     Active Substance: TOCILIZUMAB
     Indication: RHEUMATOID ARTHRITIS
     Route: 042
  10. PREDNISONE. [Concomitant]
     Active Substance: PREDNISONE
  11. MOBICOX [Suspect]
     Active Substance: MELOXICAM
     Indication: RHEUMATOID ARTHRITIS
     Route: 065
  12. BENADRYL [Concomitant]
     Active Substance: DIPHENHYDRAMINE HYDROCHLORIDE
     Route: 048
  13. ALLOPURINOL. [Concomitant]
     Active Substance: ALLOPURINOL

REACTIONS (20)
  - Colon cancer [Fatal]
  - Pain [Fatal]
  - Pain in extremity [Fatal]
  - Arthralgia [Fatal]
  - Cardiac failure [Fatal]
  - Gait disturbance [Fatal]
  - Infusion related reaction [Fatal]
  - Oxygen saturation decreased [Fatal]
  - Weight increased [Fatal]
  - Gastrointestinal disorder [Fatal]
  - Pericardial effusion [Fatal]
  - Pleural effusion [Fatal]
  - Throat lesion [Fatal]
  - Cartilage injury [Fatal]
  - Throat irritation [Fatal]
  - Cough [Fatal]
  - Hepatic cancer [Fatal]
  - Hypertension [Fatal]
  - Pulmonary oedema [Fatal]
  - Small intestinal obstruction [Fatal]
